FAERS Safety Report 19266175 (Version 1)
Quarter: 2021Q2

REPORT INFORMATION
  Report Type: Report from Study
  Country: CA (occurrence: CA)
  Receive Date: 20210518
  Receipt Date: 20210518
  Transmission Date: 20210717
  Serious: Yes (Hospitalization)
  Sender: FDA-Public Use
  Company Number: CA-BRISTOL-MYERS SQUIBB COMPANY-BMS-2021-045796

PATIENT
  Age: 88 Year
  Sex: Male

DRUGS (8)
  1. TRANDOLAPRIL. [Concomitant]
     Active Substance: TRANDOLAPRIL
     Indication: HYPERTENSION
     Dosage: UNK
     Route: 065
  2. EZETROL [Concomitant]
     Active Substance: EZETIMIBE
     Indication: HYPERLIPIDAEMIA
     Dosage: UNK
     Route: 065
  3. AFLIBERCEPT [Interacting]
     Active Substance: AFLIBERCEPT
     Indication: NEOVASCULAR AGE-RELATED MACULAR DEGENERATION
     Dosage: 50.0 MICROLITER, TOTAL
     Route: 031
  4. ASPIRIN [ACETYLSALICYLIC ACID] [Interacting]
     Active Substance: ASPIRIN
     Indication: PRODUCT USED FOR UNKNOWN INDICATION
     Dosage: UNK
     Route: 065
  5. LANSOPRAZOLE. [Concomitant]
     Active Substance: LANSOPRAZOLE
     Indication: GASTROOESOPHAGEAL REFLUX DISEASE
     Dosage: UNK
     Route: 065
  6. APIXABAN [Suspect]
     Active Substance: APIXABAN
     Indication: CORONARY ARTERY DISEASE
     Dosage: UNK
     Route: 065
  7. BISOPROLOL [Concomitant]
     Active Substance: BISOPROLOL
     Indication: CORONARY ARTERY DISEASE
     Dosage: UNK
     Route: 065
  8. PRED MOXI NEPAF [Concomitant]
     Indication: CATARACT
     Dosage: UNK
     Route: 047

REACTIONS (3)
  - Intentional product use issue [Unknown]
  - Haematuria [Recovered/Resolved]
  - Labelled drug-drug interaction medication error [Unknown]
